FAERS Safety Report 9969821 (Version 1)
Quarter: 2014Q1

REPORT INFORMATION
  Report Type: Spontaneous
  Country: US (occurrence: None)
  Receive Date: 20140304
  Receipt Date: 20140304
  Transmission Date: 20141002
  Serious: Yes (Other)
  Sender: FDA-Public Use
  Company Number: None

PATIENT
  Age: 64 Year
  Sex: Female
  Weight: 90.72 kg

DRUGS (2)
  1. LEVAQUIN [Suspect]
     Indication: UPPER RESPIRATORY TRACT INFECTION
     Dosage: TAKEN BY MOUTH
     Dates: start: 20140214, end: 20140220
  2. LEVAQUIN [Suspect]
     Indication: CHEST PAIN
     Dosage: TAKEN BY MOUTH
     Dates: start: 20140214, end: 20140220

REACTIONS (6)
  - Musculoskeletal pain [None]
  - Arthralgia [None]
  - Movement disorder [None]
  - Pain [None]
  - Tenderness [None]
  - Drug effect decreased [None]
